FAERS Safety Report 16311393 (Version 1)
Quarter: 2019Q2

REPORT INFORMATION
  Report Type: Spontaneous
  Country: US (occurrence: US)
  Receive Date: 20190409
  Receipt Date: 20190409
  Transmission Date: 20190711
  Serious: Yes (Hospitalization)
  Sender: FDA-Public Use
  Company Number: None

PATIENT
  Age: 60 Year
  Sex: Female
  Weight: 115.67 kg

DRUGS (13)
  1. METOPROLOL. [Concomitant]
     Active Substance: METOPROLOL
  2. TRIAMTERENE. [Concomitant]
     Active Substance: TRIAMTERENE
  3. MIRTAZAPINE. [Concomitant]
     Active Substance: MIRTAZAPINE
  4. LETROZOLE. [Concomitant]
     Active Substance: LETROZOLE
  5. PANTOPRAZOLE [Concomitant]
     Active Substance: PANTOPRAZOLE
  6. IBRANCE [Suspect]
     Active Substance: PALBOCICLIB
     Indication: METASTATIC NEOPLASM
     Route: 048
     Dates: start: 20190128
  7. ASPIRIN. [Concomitant]
     Active Substance: ASPIRIN
  8. PROVENTIL [Concomitant]
     Active Substance: ALBUTEROL
  9. ZOMETA [Concomitant]
     Active Substance: ZOLEDRONIC ACID
  10. NABUMETONE. [Concomitant]
     Active Substance: NABUMETONE
  11. HYDROCODONE GABAPENTINM BACLOFEN [Concomitant]
  12. METFORMIN [Concomitant]
     Active Substance: METFORMIN HYDROCHLORIDE
  13. LOSARTAN. [Concomitant]
     Active Substance: LOSARTAN

REACTIONS (4)
  - Pyrexia [None]
  - Infusion related reaction [None]
  - White blood cell count decreased [None]
  - Therapy cessation [None]
